FAERS Safety Report 22298730 (Version 3)
Quarter: 2023Q2

REPORT INFORMATION
  Report Type: Report from Study
  Country: US (occurrence: US)
  Receive Date: 20230509
  Receipt Date: 20230513
  Transmission Date: 20230722
  Serious: No
  Sender: FDA-Public Use
  Company Number: US-002147023-NVSC2023US105617

PATIENT
  Sex: Male

DRUGS (1)
  1. XIIDRA [Suspect]
     Active Substance: LIFITEGRAST
     Indication: Product used for unknown indication
     Dosage: 5 %, BID (INSTILL ONE DROP INTO EACH EYE TWICE DAILY
     Route: 047

REACTIONS (3)
  - Eye pruritus [Unknown]
  - Vision blurred [Unknown]
  - Eye irritation [Unknown]
